FAERS Safety Report 24305175 (Version 1)
Quarter: 2024Q3

REPORT INFORMATION
  Report Type: Spontaneous
  Country: US (occurrence: US)
  Receive Date: 20240911
  Receipt Date: 20240911
  Transmission Date: 20241017
  Serious: No
  Sender: RANBAXY
  Company Number: US-SUN PHARMACEUTICAL INDUSTRIES LTD-2024R1-429968

PATIENT
  Sex: Female

DRUGS (1)
  1. EZALLOR SPRINKLE [Suspect]
     Active Substance: ROSUVASTATIN CALCIUM
     Indication: Blood cholesterol increased
     Dosage: UNK UNK, QD
     Route: 065
     Dates: start: 2020

REACTIONS (2)
  - Product use issue [Unknown]
  - Product dose omission issue [Unknown]
